FAERS Safety Report 10305424 (Version 1)
Quarter: 2014Q3

REPORT INFORMATION
  Report Type: Spontaneous
  Country: US (occurrence: None)
  Receive Date: 20140710
  Receipt Date: 20140710
  Transmission Date: 20150326
  Serious: Yes (Hospitalization)
  Sender: FDA-Public Use
  Company Number: 2014AP003572

PATIENT
  Age: 48 Year
  Sex: Male

DRUGS (6)
  1. VENTOLIN [Suspect]
     Active Substance: ALBUTEROL SULFATE
     Indication: CHRONIC OBSTRUCTIVE PULMONARY DISEASE
  2. ATIVAN [Suspect]
     Active Substance: LORAZEPAM
     Indication: ANXIETY
  3. PAXIL [Suspect]
     Active Substance: PAROXETINE HYDROCHLORIDE
     Indication: ANXIETY
  4. VENTOLIN [Suspect]
     Active Substance: ALBUTEROL SULFATE
     Indication: ASTHMA
  5. NITROGLYCERIN (GLYCERYL TRINITRATE) [Concomitant]
  6. DULERA (FORMOTEROL, FUMARATE, MOMETASONE FUROATE) [Concomitant]

REACTIONS (5)
  - Panic attack [None]
  - Nervousness [None]
  - Therapeutic response decreased [None]
  - Ill-defined disorder [None]
  - Anxiety [None]
